FAERS Safety Report 13763716 (Version 3)
Quarter: 2018Q1

REPORT INFORMATION
  Report Type: Report from Study
  Country: BR (occurrence: BR)
  Receive Date: 20170718
  Receipt Date: 20180124
  Transmission Date: 20180508
  Serious: Yes (Hospitalization, Other)
  Sender: FDA-Public Use
  Company Number: PHHY2017BR104900

PATIENT
  Sex: Male
  Weight: 74 kg

DRUGS (8)
  1. SOMALGIN CARDIO [Concomitant]
     Active Substance: ASPIRIN\DIHYDROXYALUMINUM AMINOACETATE ANHYDROUS\MAGNESIUM CARBONATE
     Indication: CARDIAC DISORDER
     Dosage: 1 DF, QD FOR A LONG TIME
     Route: 048
  2. SIMVASTATIN. [Concomitant]
     Active Substance: SIMVASTATIN
     Indication: BLOOD CHOLESTEROL INCREASED
     Dosage: 1 DF, QD FOR LONG TIME
     Route: 048
  3. EXFORGE HCT [Suspect]
     Active Substance: AMLODIPINE BESYLATE\HYDROCHLOROTHIAZIDE\VALSARTAN
     Indication: HYPERTENSION
  4. OLCADIL [Suspect]
     Active Substance: CLOXAZOLAM
     Indication: SLEEP DISORDER
     Dosage: 2 DF, QD
     Route: 048
  5. ATENOLOL. [Concomitant]
     Active Substance: ATENOLOL
     Indication: CARDIAC DISORDER
     Dosage: 2 DF, QD FOR A LONG TIME
     Route: 048
  6. EXFORGE HCT [Suspect]
     Active Substance: AMLODIPINE BESYLATE\HYDROCHLOROTHIAZIDE\VALSARTAN
     Indication: CEREBROVASCULAR ACCIDENT
     Dosage: 1 DF (AMLODIPINE 5 MG, HYDROCHLOROTHIAZIDE 12.5 MG, VALSARTAN 160 MG), QD
     Route: 048
     Dates: start: 2013
  7. EXFORGE HCT [Suspect]
     Active Substance: AMLODIPINE BESYLATE\HYDROCHLOROTHIAZIDE\VALSARTAN
     Indication: CARDIAC DISORDER
  8. MILGAMMA [Concomitant]
     Active Substance: VITAMIN B
     Indication: PROPHYLAXIS
     Dosage: 1 DF, QD
     Route: 048

REACTIONS (6)
  - Aortic aneurysm [Recovering/Resolving]
  - Disturbance in attention [Unknown]
  - Gait inability [Recovering/Resolving]
  - Product use in unapproved indication [Unknown]
  - Hypokinesia [Recovering/Resolving]
  - Speech disorder [Recovering/Resolving]

NARRATIVE: CASE EVENT DATE: 2013
